FAERS Safety Report 5378236-5 (Version None)
Quarter: 2007Q3

REPORT INFORMATION
  Report Type: 
  Country: None (occurrence: None)
  Receive Date: 20070705
  Receipt Date: 20070625
  Transmission Date: 20080115
  Serious: Yes (Life-Threatening)
  Sender: FDA-Public Use
  Company Number: DK-ELI_LILLY_AND_COMPANY-DK200706005414

PATIENT
  Age: 46 Year
  Sex: Female
  Weight: 72 kg

DRUGS (13)
  1. OLANZAPINE [Suspect]
     Indication: ANXIETY
     Dosage: 5 MG, DAILY (1/D)
     Route: 048
     Dates: start: 20070608, end: 20070609
  2. ACETAMINOPHEN [Concomitant]
     Dosage: 1000 MG,
     Route: 054
     Dates: start: 20070606
  3. ENOXAPARIN SODIUM [Concomitant]
     Indication: CARDIAC NEOPLASM MALIGNANT
     Dosage: UNK, UNKNOWN
     Route: 058
     Dates: start: 20070606
  4. PANTOPRAZOLE SODIUM [Concomitant]
     Dosage: 40 MG, UNKNOWN
     Route: 042
  5. TRIAZOLAM [Concomitant]
     Dosage: 0.25 MG, UNKNOWN
     Route: 060
     Dates: start: 20070607
  6. ESKETAMINE [Concomitant]
     Dosage: UNK, UNKNOWN
     Route: 058
     Dates: start: 20070607
  7. OXYCODONE HCL [Concomitant]
     Dosage: UNK, UNKNOWN
     Route: 042
     Dates: start: 20070607
  8. KETOBEMIDONE [Concomitant]
     Dosage: UNK, UNKNOWN
     Route: 058
  9. MACROGOL [Concomitant]
     Dosage: UNK, UNKNOWN
     Route: 048
     Dates: start: 20070601
  10. HALOPERIDOL [Concomitant]
     Dosage: UNK, UNKNOWN
     Route: 042
     Dates: start: 20070607, end: 20070608
  11. ONDANSETRON [Concomitant]
     Dosage: UNK, UNKNOWN
     Route: 042
     Dates: start: 20070608
  12. FUROSEMIDE [Concomitant]
     Dosage: 10 MG, UNKNOWN
     Route: 042
     Dates: start: 20070608
  13. CEFUROXIME [Concomitant]
     Dosage: 1500 MG, UNKNOWN
     Route: 042
     Dates: start: 20070608

REACTIONS (2)
  - ANXIETY [None]
  - PULMONARY EMBOLISM [None]
